FAERS Safety Report 20146442 (Version 1)
Quarter: 2021Q4

REPORT INFORMATION
  Report Type: Spontaneous
  Country: US (occurrence: None)
  Receive Date: 20211203
  Receipt Date: 20211203
  Transmission Date: 20220303
  Serious: Yes (Life-Threatening, Hospitalization, Disabling)
  Sender: FDA-Public Use
  Company Number: None

PATIENT
  Age: 31 Year
  Sex: Female
  Weight: 48.6 kg

DRUGS (6)
  1. CEFADROXIL [Suspect]
     Active Substance: CEFADROXIL
     Indication: Infection
     Dosage: OTHER QUANTITY : 14 TABLET(S);?FREQUENCY : TWICE A DAY;?
     Route: 048
     Dates: start: 20210928, end: 20211006
  2. PROBIOTICS NOS [Concomitant]
     Active Substance: PROBIOTICS NOS
  3. Hemp organic CBD [Concomitant]
  4. CLARITIN [Concomitant]
     Active Substance: LORATADINE
  5. MELATONIN [Concomitant]
     Active Substance: MELATONIN
  6. Olly brand women^s multivitamin [Concomitant]

REACTIONS (38)
  - Constipation [None]
  - Drug hypersensitivity [None]
  - Dyspnoea [None]
  - Heart rate increased [None]
  - Chills [None]
  - Hyperhidrosis [None]
  - Diarrhoea [None]
  - Urine odour abnormal [None]
  - Blood urine [None]
  - Bedridden [None]
  - Tongue erythema [None]
  - Swollen tongue [None]
  - Ocular hyperaemia [None]
  - Erythema [None]
  - Swelling face [None]
  - Dizziness [None]
  - Dysgeusia [None]
  - Dyspnoea [None]
  - Hypoaesthesia [None]
  - Paraesthesia [None]
  - Muscle spasms [None]
  - Head discomfort [None]
  - Tinnitus [None]
  - Gait disturbance [None]
  - Skin discolouration [None]
  - Skin exfoliation [None]
  - Hyperaesthesia teeth [None]
  - Decreased appetite [None]
  - Nausea [None]
  - Retching [None]
  - Tremor [None]
  - Electric shock sensation [None]
  - Insomnia [None]
  - Fatigue [None]
  - Illness [None]
  - Restlessness [None]
  - Flatulence [None]
  - Condition aggravated [None]

NARRATIVE: CASE EVENT DATE: 20211013
